FAERS Safety Report 4585403-7 (Version None)
Quarter: 2005Q1

REPORT INFORMATION
  Report Type: 
  Country: None (occurrence: None)
  Receive Date: 20050214
  Receipt Date: 20050126
  Transmission Date: 20050727
  Serious: Yes (Hospitalization)
  Sender: FDA-Public Use
  Company Number: A20043825

PATIENT
  Age: 80 Year
  Sex: Male

DRUGS (6)
  1. KERLONE [Suspect]
     Indication: CARDIAC FAILURE CHRONIC
     Dosage: 2.5 MG PO
     Route: 048
     Dates: start: 20041116, end: 20041207
  2. NU-LOTAN                                  (LOSARTAN POTASSIUM) [Concomitant]
  3. DIGOXIN [Concomitant]
  4. BAYASPIRIN (ASPIRIN) [Concomitant]
  5. WARFARIN SODIUM [Concomitant]
  6. DIART       (AZOSEMIDE) [Concomitant]

REACTIONS (4)
  - ACUTE PRERENAL FAILURE [None]
  - DEHYDRATION [None]
  - HYPERURICAEMIA [None]
  - INTERSTITIAL LUNG DISEASE [None]
